FAERS Safety Report 5503637-1 (Version None)
Quarter: 2007Q4

REPORT INFORMATION
  Report Type: 
  Country: None (occurrence: None)
  Receive Date: 20071101
  Receipt Date: 20071026
  Transmission Date: 20080405
  Serious: Yes (Hospitalization)
  Sender: FDA-Public Use
  Company Number: US-SANOFI-SYNTHELABO-A03200706185

PATIENT
  Age: 63 Year
  Sex: Female

DRUGS (5)
  1. ELOXATIN [Suspect]
     Indication: COLON CANCER METASTATIC
     Route: 042
     Dates: start: 20071001, end: 20071001
  2. ELOXATIN [Suspect]
     Route: 042
     Dates: start: 20071022, end: 20071022
  3. AVASTIN [Concomitant]
     Dosage: UNK
     Route: 065
  4. LEUCOVORIN [Concomitant]
     Dosage: UNK
     Route: 065
  5. FLUOROURACIL [Concomitant]
     Dosage: UNK
     Route: 065

REACTIONS (1)
  - THROMBOTIC THROMBOCYTOPENIC PURPURA [None]
